FAERS Safety Report 25584323 (Version 1)
Quarter: 2025Q3

REPORT INFORMATION
  Report Type: Spontaneous
  Country: EU (occurrence: EU)
  Receive Date: 20250721
  Receipt Date: 20250721
  Transmission Date: 20251021
  Serious: Yes (Other)
  Sender: AUROBINDO
  Company Number: EU-MLMSERVICE-20211231-3295689-1

PATIENT
  Age: 19 Year
  Sex: Male

DRUGS (20)
  1. LEVETIRACETAM [Suspect]
     Active Substance: LEVETIRACETAM
     Indication: Generalised tonic-clonic seizure
     Dosage: 1500 MILLIGRAM, ONCE A DAY
     Route: 065
  2. LEVETIRACETAM [Suspect]
     Active Substance: LEVETIRACETAM
     Indication: Severe myoclonic epilepsy of infancy
  3. LEVETIRACETAM [Suspect]
     Active Substance: LEVETIRACETAM
     Indication: Febrile convulsion
  4. VALPROIC ACID [Suspect]
     Active Substance: VALPROIC ACID
     Indication: Severe myoclonic epilepsy of infancy
     Route: 065
  5. VALPROIC ACID [Suspect]
     Active Substance: VALPROIC ACID
     Indication: Febrile convulsion
     Dosage: 2000 MILLIGRAM, ONCE A DAY
     Route: 065
  6. VALPROIC ACID [Suspect]
     Active Substance: VALPROIC ACID
     Indication: Generalised tonic-clonic seizure
     Dosage: 800 MILLIGRAM, ONCE A DAY
     Route: 065
  7. CLOBAZAM [Concomitant]
     Active Substance: CLOBAZAM
     Indication: Severe myoclonic epilepsy of infancy
     Dosage: 40 MILLIGRAM, ONCE A DAY
     Route: 065
  8. CLOBAZAM [Concomitant]
     Active Substance: CLOBAZAM
     Indication: Generalised tonic-clonic seizure
     Dosage: 30 MILLIGRAM, ONCE A DAY
     Route: 065
  9. CLOBAZAM [Concomitant]
     Active Substance: CLOBAZAM
     Indication: Febrile convulsion
  10. ESLICARBAZEPINE ACETATE [Concomitant]
     Active Substance: ESLICARBAZEPINE ACETATE
     Indication: Generalised tonic-clonic seizure
     Dosage: 400 MILLIGRAM, ONCE A DAY
     Route: 065
  11. ESLICARBAZEPINE ACETATE [Concomitant]
     Active Substance: ESLICARBAZEPINE ACETATE
     Indication: Severe myoclonic epilepsy of infancy
     Dosage: 200 MILLIGRAM, ONCE A DAY
     Route: 065
  12. ESLICARBAZEPINE ACETATE [Concomitant]
     Active Substance: ESLICARBAZEPINE ACETATE
     Indication: Febrile convulsion
  13. ETHOSUXIMIDE [Concomitant]
     Active Substance: ETHOSUXIMIDE
     Indication: Severe myoclonic epilepsy of infancy
     Dosage: 1000 MILLIGRAM, ONCE A DAY
     Route: 065
  14. FELBAMATE [Concomitant]
     Active Substance: FELBAMATE
     Indication: Severe myoclonic epilepsy of infancy
     Dosage: 1800 MILLIGRAM, ONCE A DAY
     Route: 065
  15. PERAMPANEL [Concomitant]
     Active Substance: PERAMPANEL
     Indication: Severe myoclonic epilepsy of infancy
     Dosage: 4 MILLIGRAM, ONCE A DAY
     Route: 065
  16. PHENOBARBITAL [Concomitant]
     Active Substance: PHENOBARBITAL
     Indication: Severe myoclonic epilepsy of infancy
     Dosage: 100 MILLIGRAM, ONCE A DAY
     Route: 065
  17. RUFINAMIDE [Concomitant]
     Active Substance: RUFINAMIDE
     Indication: Severe myoclonic epilepsy of infancy
     Dosage: 400 MILLIGRAM, ONCE A DAY
     Route: 065
  18. STIRIPENTOL [Concomitant]
     Active Substance: STIRIPENTOL
     Indication: Severe myoclonic epilepsy of infancy
     Dosage: 2000 MILLIGRAM, ONCE A DAY
     Route: 065
  19. TOPIRAMATE [Concomitant]
     Active Substance: TOPIRAMATE
     Indication: Severe myoclonic epilepsy of infancy
     Dosage: 200 MILLIGRAM, ONCE A DAY
     Route: 065
  20. ZONISAMIDE [Concomitant]
     Active Substance: ZONISAMIDE
     Indication: Severe myoclonic epilepsy of infancy
     Dosage: 100 MILLIGRAM, ONCE A DAY
     Route: 065

REACTIONS (2)
  - Drug ineffective [Unknown]
  - Hyperammonaemia [Unknown]
